FAERS Safety Report 8453432 (Version 3)
Quarter: 2014Q2

REPORT INFORMATION
  Report Type: Spontaneous
  Country: US (occurrence: US)
  Receive Date: 20111228
  Receipt Date: 20131018
  Transmission Date: 20141212
  Serious: Yes (Death, Other)
  Sender: FDA-Public Use
  Company Number: US-PFIZER INC-2011309462

PATIENT
  Age: 52 Year
  Sex: Female

DRUGS (9)
  1. MORPHINE SULFATE [Suspect]
     Dosage: UNK
  2. PROPANOLOL HCL [Suspect]
     Dosage: UNK
  3. GABAPENTIN [Suspect]
     Dosage: UNK
     Route: 048
  4. GEMFIBROZIL [Suspect]
     Dosage: UNK
  5. AMITRIPTYLINE [Suspect]
     Dosage: UNK
     Route: 048
  6. CYCLOBENZAPRINE [Suspect]
     Dosage: UNK
  7. METOCLOPRAMIDE [Suspect]
     Dosage: UNK
  8. ETHANOL [Suspect]
     Dosage: UNK
  9. AMPHETAMINE [Suspect]
     Dosage: UNK

REACTIONS (3)
  - Completed suicide [Fatal]
  - Cardiac arrest [Unknown]
  - Respiratory arrest [Unknown]
